FAERS Safety Report 7691092-5 (Version None)
Quarter: 2011Q3

REPORT INFORMATION
  Report Type: 
  Country: None (occurrence: None)
  Receive Date: 20110818
  Receipt Date: 20110808
  Transmission Date: 20111222
  Serious: Yes (Hospitalization, Disabling)
  Sender: FDA-Public Use
  Company Number: JP-ELI_LILLY_AND_COMPANY-JP201106005288

PATIENT
  Sex: Female
  Weight: 52.3 kg

DRUGS (12)
  1. ALENDRONATE SODIUM [Concomitant]
     Indication: PROPHYLAXIS
     Dosage: 35 MG, WEEKLY (1/W)
     Route: 048
     Dates: start: 20101203
  2. PANVITAN [Concomitant]
     Indication: PROPHYLAXIS
     Dosage: 1 G, EACH EVENING
     Route: 048
     Dates: start: 20110405
  3. LANSOPRAZOLE [Concomitant]
     Indication: GASTROOESOPHAGEAL REFLUX DISEASE
     Dosage: 30 MG, EACH EVENING
     Route: 048
     Dates: start: 20101120
  4. ACETAMINOPHEN [Concomitant]
     Indication: PAIN MANAGEMENT
     Dosage: 1.8 G, TID
     Route: 048
     Dates: start: 20101123
  5. SULFAMETHOXAZOLE [Concomitant]
     Indication: PROPHYLAXIS
     Dosage: UNK, QD
     Route: 048
     Dates: start: 20101203
  6. TRAZODONE HYDROCHLORIDE [Concomitant]
     Indication: INSOMNIA
     Dosage: 25 MG, EACH EVENING
     Route: 048
     Dates: start: 20101119
  7. PREDNISOLONE [Concomitant]
     Indication: APPETITE DISORDER
     Dosage: 5 MG, EACH MORNING
     Route: 048
     Dates: start: 20101126
  8. METHYCOBAL [Concomitant]
     Dosage: UNK
     Route: 030
     Dates: start: 20110405
  9. OXYCONTIN [Concomitant]
     Indication: PAIN MANAGEMENT
     Dosage: 40 MG, BID
     Route: 048
     Dates: start: 20101215, end: 20110415
  10. ALIMTA [Suspect]
     Indication: LUNG ADENOCARCINOMA STAGE IV
     Dosage: 725 MG, UNK
     Route: 042
     Dates: start: 20110412, end: 20110101
  11. ALFAROL [Concomitant]
     Indication: PROPHYLAXIS
     Dosage: 1 UG, EACH MORNING
     Route: 048
     Dates: start: 20101203
  12. TETRAMIDE [Concomitant]
     Indication: INSOMNIA
     Dosage: 30 MG, EACH EVENING
     Route: 048
     Dates: start: 20101203

REACTIONS (4)
  - ASPARTATE AMINOTRANSFERASE INCREASED [None]
  - ALANINE AMINOTRANSFERASE INCREASED [None]
  - FATIGUE [None]
  - BLOOD ALKALINE PHOSPHATASE INCREASED [None]
